FAERS Safety Report 11243255 (Version 1)
Quarter: 2015Q3

REPORT INFORMATION
  Report Type: Spontaneous
  Country: US (occurrence: US)
  Receive Date: 20150707
  Receipt Date: 20150707
  Transmission Date: 20151125
  Serious: Yes (Hospitalization)
  Sender: FDA-Public Use
  Company Number: US-COREPHARMA LLC-2015COR00133

PATIENT
  Age: 34 Year
  Sex: Female

DRUGS (3)
  1. DIETHYLPROPION HYDROCHLORIDE. [Suspect]
     Active Substance: DIETHYLPROPION HYDROCHLORIDE
     Indication: WEIGHT DECREASED
     Dosage: 75 MG, 1X/DAY
  2. ROSUVASTATIN [Concomitant]
     Active Substance: ROSUVASTATIN
     Dosage: 5 MG, 1X/DAY
  3. INSULIN ASPART [Concomitant]
     Active Substance: INSULIN ASPART

REACTIONS (1)
  - Diabetic ketoacidosis [Recovered/Resolved]
